FAERS Safety Report 23014028 (Version 3)
Quarter: 2024Q3

REPORT INFORMATION
  Report Type: Report from Study
  Country: CA (occurrence: CA)
  Receive Date: 20231002
  Receipt Date: 20240725
  Transmission Date: 20241017
  Serious: Yes (Hospitalization, Other)
  Sender: CSL BEHRING
  Company Number: CA-BEH-2023163662

PATIENT
  Age: 83 Year
  Sex: Female
  Weight: 76 kg

DRUGS (31)
  1. HIZENTRA [Suspect]
     Active Substance: HUMAN IMMUNOGLOBULIN G
     Indication: Primary immunodeficiency syndrome
     Dosage: 11 GRAM, QW
     Route: 065
     Dates: start: 20220920
  2. ACETAMINOPHEN [Concomitant]
     Active Substance: ACETAMINOPHEN
  3. CALCIUM [Concomitant]
     Active Substance: CALCIUM
  4. ALVESCO [Concomitant]
     Active Substance: CICLESONIDE
  5. NASONEX [Concomitant]
     Active Substance: MOMETASONE FUROATE
  6. PREDNISONE [Concomitant]
     Active Substance: PREDNISONE
  7. LINAGLIPTIN [Concomitant]
     Active Substance: LINAGLIPTIN
  8. MONTELUKAST SODIUM [Concomitant]
     Active Substance: MONTELUKAST SODIUM
  9. ATORVASTATIN [Concomitant]
     Active Substance: ATORVASTATIN
  10. DILTIAZEM [Concomitant]
     Active Substance: DILTIAZEM
  11. RISEDRONATE SODIUM [Concomitant]
     Active Substance: RISEDRONATE SODIUM
  12. SODIUM [Concomitant]
     Active Substance: SODIUM
  13. METFORMIN [Concomitant]
     Active Substance: METFORMIN HYDROCHLORIDE
  14. IRBESARTAN [Concomitant]
     Active Substance: IRBESARTAN
  15. FERROUS SULFATE [Concomitant]
     Active Substance: FERROUS SULFATE
  16. PREGABALIN [Concomitant]
     Active Substance: PREGABALIN
  17. DOXAZOSIN MESYLATE [Concomitant]
     Active Substance: DOXAZOSIN MESYLATE
  18. CHOLECALCIFEROL [Concomitant]
     Active Substance: CHOLECALCIFEROL
  19. PANTOPRAZOLE [Concomitant]
     Active Substance: PANTOPRAZOLE
  20. DOMPERIDONE [Concomitant]
     Active Substance: DOMPERIDONE
  21. ASPIRIN [Concomitant]
     Active Substance: ASPIRIN
  22. ISOSORBIDE MONONITRATE [Concomitant]
     Active Substance: ISOSORBIDE MONONITRATE
  23. SULFAMETHOXAZOLE [Concomitant]
     Active Substance: SULFAMETHOXAZOLE
  24. FLUTICASONE FUROATE [Concomitant]
     Active Substance: FLUTICASONE FUROATE
  25. PREDNISONE [Concomitant]
     Active Substance: PREDNISONE
  26. EMOLAX [MACROGOL 3350] [Concomitant]
  27. OCTREOTIDE [Concomitant]
     Active Substance: OCTREOTIDE\OCTREOTIDE ACETATE
  28. EVUSHELD [Concomitant]
     Active Substance: CILGAVIMAB\TIXAGEVIMAB
  29. FASENRA [Concomitant]
     Active Substance: BENRALIZUMAB
  30. METROGEL [Concomitant]
     Active Substance: METRONIDAZOLE
  31. ALBUTEROL [Concomitant]
     Active Substance: ALBUTEROL

REACTIONS (18)
  - Fatigue [Unknown]
  - Transfusion [Unknown]
  - Dehydration [Unknown]
  - Thrombosis [Unknown]
  - Haemorrhage [Unknown]
  - Renal impairment [Unknown]
  - Coronary arterial stent insertion [Unknown]
  - Eating disorder [Recovered/Resolved]
  - White blood cell count decreased [Unknown]
  - White blood cell count increased [Unknown]
  - Illness [Unknown]
  - Pneumonia aspiration [Unknown]
  - Dysphagia [Unknown]
  - Fatigue [Unknown]
  - Pneumonia aspiration [Unknown]
  - Vomiting [Unknown]
  - Ill-defined disorder [Unknown]
  - Angina pectoris [Unknown]

NARRATIVE: CASE EVENT DATE: 20220101
